FAERS Safety Report 16481965 (Version 1)
Quarter: 2019Q2

REPORT INFORMATION
  Report Type: Spontaneous
  Country: JP (occurrence: JP)
  Receive Date: 20190627
  Receipt Date: 20190627
  Transmission Date: 20190711
  Serious: Yes (Other)
  Sender: FDA-Public Use
  Company Number: JP-TEVA-2019-JP-003751J

PATIENT
  Age: 86 Year
  Sex: Male

DRUGS (1)
  1. ACTOS [Suspect]
     Active Substance: PIOGLITAZONE HYDROCHLORIDE
     Indication: PRODUCT USED FOR UNKNOWN INDICATION
     Route: 065

REACTIONS (2)
  - Renal impairment [Unknown]
  - Blood potassium increased [Unknown]
